FAERS Safety Report 5989601-7 (Version None)
Quarter: 2008Q4

REPORT INFORMATION
  Report Type: 
  Country: None (occurrence: None)
  Receive Date: 20081208
  Receipt Date: 20081127
  Transmission Date: 20090506
  Serious: Yes (Other)
  Sender: FDA-Public Use
  Company Number: 2008SP024348

PATIENT
  Age: 66 Year
  Sex: Female

DRUGS (5)
  1. TEMODAL [Suspect]
     Indication: GLIOBLASTOMA MULTIFORME
     Dosage: 140 MG;QD;PO
     Route: 048
     Dates: start: 20081107, end: 20081112
  2. OMEPRAZOLE [Concomitant]
  3. KEPPRA [Concomitant]
  4. DEPAKENE [Concomitant]
  5. DEXAMETHASONE [Concomitant]

REACTIONS (2)
  - PITUITARY-DEPENDENT CUSHING'S SYNDROME [None]
  - PLATELET COUNT DECREASED [None]
